FAERS Safety Report 25742568 (Version 1)
Quarter: 2025Q3

REPORT INFORMATION
  Report Type: Spontaneous
  Country: CN (occurrence: CN)
  Receive Date: 20250829
  Receipt Date: 20250829
  Transmission Date: 20251021
  Serious: Yes (Life-Threatening, Other)
  Sender: GE HEALTHCARE
  Company Number: None

PATIENT
  Age: 69 Year
  Sex: Male

DRUGS (4)
  1. OMNIPAQUE [Suspect]
     Active Substance: IOHEXOL
     Indication: Arteriogram carotid
     Route: 013
     Dates: start: 20250811, end: 20250811
  2. OMNIPAQUE [Suspect]
     Active Substance: IOHEXOL
     Indication: Carotid artery stent insertion
  3. LIDOCAINE [Concomitant]
     Active Substance: LIDOCAINE
     Indication: Infiltration anaesthesia
     Dates: start: 20250811, end: 20250811
  4. HEPARIN [Concomitant]
     Active Substance: HEPARIN SODIUM
     Indication: Catheter management
     Route: 013
     Dates: start: 20250811, end: 20250811

REACTIONS (5)
  - Dysphoria [Recovered/Resolved]
  - Anaphylactic shock [Recovered/Resolved]
  - Loss of consciousness [Recovered/Resolved]
  - Unresponsive to stimuli [Recovered/Resolved]
  - Blood pressure decreased [Recovered/Resolved]

NARRATIVE: CASE EVENT DATE: 20250811
